FAERS Safety Report 8607888 (Version 2)
Quarter: 2012Q4

REPORT INFORMATION
  Report Type: 
  Country: CN (occurrence: CN)
  Receive Date: 20120611
  Receipt Date: 20121126
  Transmission Date: 20130627
  Serious: Yes (Hospitalization)
  Sender: FDA-Public Use
  Company Number: DE-RANBAXY-2012US-57057

PATIENT

DRUGS (6)
  1. PANTOLOC [Suspect]
     Indication: PROPHYLAXIS
     Dosage: 40 mg, bid
     Route: 048
  2. PANTOLOC [Suspect]
     Indication: PROPHYLAXIS
     Dosage: 40mg
     Route: 058
  3. ASPIRIN [Concomitant]
     Indication: ACUTE CORONARY SYNDROME
     Dosage: UNK
     Route: 065
  4. CLOPIDOGREL [Concomitant]
     Indication: ACUTE CORONARY SYNDROME
     Dosage: UNK
     Route: 065
  5. TIROFIBAN [Concomitant]
     Indication: ACUTE CORONARY SYNDROME
     Dosage: UNK
     Route: 041
  6. ENOXAPARIN [Concomitant]
     Indication: ACUTE CORONARY SYNDROME

REACTIONS (1)
  - Angina pectoris [Unknown]
